FAERS Safety Report 16307327 (Version 1)
Quarter: 2019Q2

REPORT INFORMATION
  Report Type: Report from Study
  Country: DE (occurrence: DE)
  Receive Date: 20190514
  Receipt Date: 20190514
  Transmission Date: 20190711
  Serious: Yes (Hospitalization)
  Sender: FDA-Public Use
  Company Number: DE-ROCHE-2101973

PATIENT
  Age: 46 Year
  Sex: Male

DRUGS (7)
  1. CANDECOR [Concomitant]
     Active Substance: CANDESARTAN CILEXETIL
     Route: 065
  2. OCREVUS [Suspect]
     Active Substance: OCRELIZUMAB
     Indication: PRIMARY PROGRESSIVE MULTIPLE SCLEROSIS
     Dosage: ACC. PRESCRIBING INFORMATION
     Route: 042
     Dates: start: 20180131
  3. TAMSULOSIN [Concomitant]
     Active Substance: TAMSULOSIN
     Route: 065
  4. OCREVUS [Suspect]
     Active Substance: OCRELIZUMAB
     Dosage: SECOND INFUSION
     Route: 042
     Dates: start: 20180214
  5. FAMPYRA [Concomitant]
     Active Substance: DALFAMPRIDINE
     Route: 065
  6. FAMPYRA [Concomitant]
     Active Substance: DALFAMPRIDINE
     Route: 065
  7. CANDECOR [Concomitant]
     Active Substance: CANDESARTAN CILEXETIL
     Route: 065

REACTIONS (7)
  - Speech disorder [Recovered/Resolved]
  - Urinary tract infection [Not Recovered/Not Resolved]
  - Atonic urinary bladder [Not Recovered/Not Resolved]
  - Asthenia [Recovered/Resolved]
  - Anal incontinence [Recovered/Resolved]
  - Hypertension [Not Recovered/Not Resolved]
  - General physical health deterioration [Not Recovered/Not Resolved]

NARRATIVE: CASE EVENT DATE: 20180207
